FAERS Safety Report 12394229 (Version 3)
Quarter: 2016Q2

REPORT INFORMATION
  Report Type: Spontaneous
  Country: US (occurrence: US)
  Receive Date: 20160523
  Receipt Date: 20160628
  Transmission Date: 20160815
  Serious: Yes (Other)
  Sender: FDA-Public Use
  Company Number: US-PFIZER INC-2016264487

PATIENT
  Age: 40 Year
  Sex: Female

DRUGS (4)
  1. ALPRAZOLAM. [Suspect]
     Active Substance: ALPRAZOLAM
     Indication: ANXIETY
     Dosage: 4 MG, DAILY
     Route: 048
  2. ALPRAZOLAM. [Suspect]
     Active Substance: ALPRAZOLAM
     Dosage: 1 MG EVERY 2 HOURS AND 45 MINUTES
     Route: 048
  3. ALPRAZOLAM. [Suspect]
     Active Substance: ALPRAZOLAM
     Dosage: 1.5 MG, DAILY
     Route: 048
  4. CEFZIL [Concomitant]
     Active Substance: CEFPROZIL
     Indication: TOOTH INFECTION
     Dosage: 250 ML 1 TEASPOON, TWICE A DAY
     Route: 048

REACTIONS (5)
  - Drug dependence [Unknown]
  - Tooth infection [Unknown]
  - Weight decreased [Unknown]
  - Lung disorder [Unknown]
  - Intentional product use issue [Unknown]

NARRATIVE: CASE EVENT DATE: 2016
